FAERS Safety Report 12446045 (Version 2)
Quarter: 2016Q3

REPORT INFORMATION
  Report Type: Spontaneous
  Country: US (occurrence: US)
  Receive Date: 20160608
  Receipt Date: 20160720
  Transmission Date: 20161109
  Serious: Yes (Other)
  Sender: FDA-Public Use
  Company Number: US-ASTRAZENECA-2016SE46389

PATIENT
  Sex: Male

DRUGS (2)
  1. BYDUREON [Suspect]
     Active Substance: EXENATIDE
     Indication: DIABETES MELLITUS
     Route: 065
     Dates: start: 201610
  2. METFORMIN [Suspect]
     Active Substance: METFORMIN HYDROCHLORIDE
     Dosage: NON-AZ PRODUCT
     Route: 065

REACTIONS (4)
  - Myocardial infarction [Unknown]
  - Blood glucose increased [Unknown]
  - Intentional product misuse [Unknown]
  - Nausea [Unknown]

NARRATIVE: CASE EVENT DATE: 201601
